FAERS Safety Report 5709182-2 (Version None)
Quarter: 2008Q2

REPORT INFORMATION
  Report Type: 
  Country: None (occurrence: None)
  Receive Date: 20080418
  Receipt Date: 20080415
  Transmission Date: 20081010
  Serious: Yes (Life-Threatening, Other)
  Sender: FDA-Public Use
  Company Number: US-ASTRAZENECA-2008UW07737

PATIENT
  Age: 51 Year
  Sex: Female
  Weight: 61 kg

DRUGS (3)
  1. ARIMIDEX [Suspect]
     Indication: BREAST CANCER
     Route: 048
     Dates: start: 20070901
  2. NOLVADEX [Suspect]
     Indication: BREAST CANCER
     Route: 048
     Dates: start: 20030101, end: 20070801
  3. PROPRANOLOL [Concomitant]
     Indication: BLOOD PRESSURE
     Dates: start: 20070901

REACTIONS (9)
  - COMA [None]
  - DIABETES MELLITUS [None]
  - HOT FLUSH [None]
  - HYPERCHOLESTEROLAEMIA [None]
  - HYPERGLYCAEMIA [None]
  - HYPERTENSION [None]
  - HYPERTHYROIDISM [None]
  - HYPOTHYROIDISM [None]
  - WEIGHT INCREASED [None]
